FAERS Safety Report 7459895-X (Version None)
Quarter: 2011Q2

REPORT INFORMATION
  Report Type: 
  Country: None (occurrence: None)
  Receive Date: 20110504
  Receipt Date: 20110504
  Transmission Date: 20111010
  Serious: Yes (Hospitalization)
  Sender: FDA-Public Use
  Company Number: None

PATIENT
  Sex: Female
  Weight: 73 kg

DRUGS (2)
  1. WARFARIN SODIUM [Suspect]
     Indication: DEEP VEIN THROMBOSIS
     Dosage: 4MG DAILY PO
     Route: 048
     Dates: start: 20110128, end: 20110131
  2. ENOXAPARIN [Suspect]
     Indication: DEEP VEIN THROMBOSIS
     Dosage: 70MG  Q12H SQ
     Route: 058
     Dates: start: 20110128, end: 20110131

REACTIONS (1)
  - RETROPERITONEAL HAEMORRHAGE [None]
